FAERS Safety Report 18555710 (Version 2)
Quarter: 2020Q4

REPORT INFORMATION
  Report Type: Spontaneous
  Country: US (occurrence: US)
  Receive Date: 20201127
  Receipt Date: 20201201
  Transmission Date: 20210114
  Serious: No
  Sender: FDA-Public Use
  Company Number: US-PFIZER INC-2020461227

PATIENT
  Age: 58 Year
  Sex: Female
  Weight: 65.32 kg

DRUGS (3)
  1. PROZAC [Concomitant]
     Active Substance: FLUOXETINE HYDROCHLORIDE
     Indication: DEPRESSION
     Dosage: 20 MG
     Dates: start: 2020
  2. METHIMAZOLE. [Suspect]
     Active Substance: METHIMAZOLE
     Indication: HYPERTHYROIDISM
     Dosage: 2.5 MG, DAILY
     Dates: start: 20200814
  3. AMLODIPINE [Concomitant]
     Active Substance: AMLODIPINE BESYLATE
     Indication: BLOOD PRESSURE ABNORMAL
     Dosage: 10 MG

REACTIONS (3)
  - Product use issue [Unknown]
  - Weight abnormal [Not Recovered/Not Resolved]
  - Drug ineffective [Unknown]
